FAERS Safety Report 13178631 (Version 2)
Quarter: 2017Q2

REPORT INFORMATION
  Report Type: Spontaneous
  Country: AU (occurrence: AU)
  Receive Date: 20170202
  Receipt Date: 20170413
  Transmission Date: 20170830
  Serious: Yes (Hospitalization, Other)
  Sender: FDA-Public Use
  Company Number: AU-BRISTOL-MYERS SQUIBB COMPANY-BMS-2017-007650

PATIENT
  Age: 85 Year
  Sex: Female
  Weight: 81.1 kg

DRUGS (1)
  1. ELIQUIS [Suspect]
     Active Substance: APIXABAN
     Indication: CEREBROVASCULAR ACCIDENT PROPHYLAXIS
     Dosage: 2.5 MG, BID
     Route: 048

REACTIONS (3)
  - Uterine polypectomy [Recovering/Resolving]
  - Vaginal haemorrhage [Recovered/Resolved]
  - Embolic cerebral infarction [Unknown]

NARRATIVE: CASE EVENT DATE: 20170124
